FAERS Safety Report 15735216 (Version 1)
Quarter: 2018Q4

REPORT INFORMATION
  Report Type: Spontaneous
  Country: US (occurrence: US)
  Receive Date: 20181218
  Receipt Date: 20181218
  Transmission Date: 20190205
  Serious: Yes (Life-Threatening, Other)
  Sender: FDA-Public Use
  Company Number: None

PATIENT
  Age: 27 Year
  Sex: Female
  Weight: 156.6 kg

DRUGS (3)
  1. MAGNESIUM SULFATE IN WATER FOR INJECTION [Suspect]
     Active Substance: MAGNESIUM SULFATE HEPTAHYDRATE
     Indication: PRE-ECLAMPSIA
     Dosage: ?          OTHER FREQUENCY:ONE TIME;?
     Route: 040
  2. HYDRALAZINE [Concomitant]
     Active Substance: HYDRALAZINE HYDROCHLORIDE
     Dates: start: 20180828, end: 20180828
  3. MAGNESIUM SULFATE IN WATER FOR INJECTION [Suspect]
     Active Substance: MAGNESIUM SULFATE HEPTAHYDRATE
     Indication: PRE-ECLAMPSIA
     Dosage: ?          OTHER FREQUENCY:@ 2 GRAMS/HR;?
     Route: 041

REACTIONS (5)
  - Dyspnoea [None]
  - Chest discomfort [None]
  - Extubation [None]
  - Procedural complication [None]
  - Caesarean section [None]

NARRATIVE: CASE EVENT DATE: 20180828
